FAERS Safety Report 10426911 (Version 1)
Quarter: 2014Q3

REPORT INFORMATION
  Report Type: Spontaneous
  Country: US (occurrence: None)
  Receive Date: 20140902
  Receipt Date: 20140902
  Transmission Date: 20150326
  Serious: No
  Sender: FDA-Public Use
  Company Number: None

PATIENT
  Age: 50 Year
  Sex: Male
  Weight: 69.85 kg

DRUGS (1)
  1. AZITHROMYCIN [Suspect]
     Active Substance: AZITHROMYCIN ANHYDROUS
     Indication: SINUSITIS
     Dosage: 2 PILLS FIRST DOSAGE THAN 1 PILL ONCE DAILY TAKEN BY MOUTH
     Route: 048
     Dates: start: 20140819, end: 20140821

REACTIONS (18)
  - Myalgia [None]
  - Fatigue [None]
  - Heart rate irregular [None]
  - Arthralgia [None]
  - Chest pain [None]
  - Abdominal discomfort [None]
  - Dyspepsia [None]
  - Pain in jaw [None]
  - Vision blurred [None]
  - Flank pain [None]
  - Tinnitus [None]
  - Micturition disorder [None]
  - Back pain [None]
  - Dizziness [None]
  - Neck pain [None]
  - Heart rate increased [None]
  - Diarrhoea [None]
  - Eyelid ptosis [None]

NARRATIVE: CASE EVENT DATE: 20140828
